FAERS Safety Report 4288835-X (Version None)
Quarter: 2004Q1

REPORT INFORMATION
  Report Type: 
  Country: None (occurrence: None)
  Receive Date: 20040209
  Receipt Date: 20040128
  Transmission Date: 20041129
  Serious: Yes (Hospitalization)
  Sender: FDA-Public Use
  Company Number: PHHO2004JP01617

PATIENT
  Age: 85 Year
  Sex: Male

DRUGS (3)
  1. DIOVAN [Suspect]
     Indication: HYPERTENSION
     Dosage: 80 MG, UNK
     Route: 048
     Dates: start: 20021129, end: 20030606
  2. TANATRIL [Suspect]
     Dosage: 5 MG / DAY
     Route: 048
  3. NORVASC [Suspect]
     Dosage: 25 MG / DAY
     Route: 048

REACTIONS (5)
  - BLOOD PRESSURE DECREASED [None]
  - CEREBRAL INFARCTION [None]
  - DEPRESSED LEVEL OF CONSCIOUSNESS [None]
  - DYSARTHRIA [None]
  - HEMIPLEGIA [None]
